FAERS Safety Report 19711672 (Version 1)
Quarter: 2021Q3

REPORT INFORMATION
  Report Type: Other
  Country: US (occurrence: US)
  Receive Date: 20210816
  Receipt Date: 20210816
  Transmission Date: 20211014
  Serious: No
  Sender: FDA-Public Use
  Company Number: US-ASCENT PHARMACEUTICALS, INC.-2115124

PATIENT

DRUGS (1)
  1. OXYCODONE HYDROCHLORIDE. [Suspect]
     Active Substance: OXYCODONE HYDROCHLORIDE
     Indication: PAIN
     Route: 065

REACTIONS (8)
  - Dizziness [Unknown]
  - Wrong technique in product usage process [Unknown]
  - Illness [Unknown]
  - Nausea [Unknown]
  - Withdrawal syndrome [Unknown]
  - Asthenia [Unknown]
  - Malaise [Unknown]
  - Product substitution issue [Unknown]
